FAERS Safety Report 6160107-8 (Version None)
Quarter: 2009Q2

REPORT INFORMATION
  Report Type: 
  Country: None (occurrence: None)
  Receive Date: 20090420
  Receipt Date: 20090410
  Transmission Date: 20091009
  Serious: Yes (Other)
  Sender: FDA-Public Use
  Company Number: IT-CELGENEUS-083-CCAZA-09041232

PATIENT

DRUGS (3)
  1. AZACITIDINE [Suspect]
     Dosage: 75 OR 100MG/SQM
     Route: 058
  2. GROWTH FACTORS [Concomitant]
     Indication: DRUG USE FOR UNKNOWN INDICATION
     Route: 065
  3. VALPROIC ACID [Concomitant]
     Indication: DRUG USE FOR UNKNOWN INDICATION
     Route: 065

REACTIONS (3)
  - BONE MARROW FAILURE [None]
  - GASTROINTESTINAL DISORDER [None]
  - INFECTION [None]
